FAERS Safety Report 18893976 (Version 2)
Quarter: 2021Q1

REPORT INFORMATION
  Report Type: Report from Study
  Country: US (occurrence: US)
  Receive Date: 20210215
  Receipt Date: 20210226
  Transmission Date: 20210420
  Serious: Yes (Death)
  Sender: FDA-Public Use
  Company Number: NVSC2021US035284

PATIENT
  Age: 46 Year
  Sex: Female
  Weight: 55.1 kg

DRUGS (1)
  1. MEKINIST [Suspect]
     Active Substance: TRAMETINIB DIMETHYL SULFOXIDE
     Indication: OVARIAN CANCER
     Dosage: 2 MG
     Route: 048
     Dates: start: 20210115

REACTIONS (6)
  - Ovarian cancer [Fatal]
  - Illness [Unknown]
  - Malignant gastrointestinal obstruction [Fatal]
  - Nausea [Unknown]
  - Product use in unapproved indication [Unknown]
  - Vomiting [Unknown]

NARRATIVE: CASE EVENT DATE: 20210115
